FAERS Safety Report 6803091-3 (Version None)
Quarter: 2010Q2

REPORT INFORMATION
  Report Type: 
  Country: None (occurrence: None)
  Receive Date: 20100628
  Receipt Date: 20100617
  Transmission Date: 20101027
  Serious: Yes (Hospitalization, Other)
  Sender: FDA-Public Use
  Company Number: GB-JNJFOC-20090907557

PATIENT
  Age: 62 Year
  Sex: Female

DRUGS (11)
  1. REMICADE [Suspect]
     Indication: RHEUMATOID ARTHRITIS
     Route: 042
     Dates: start: 20051128, end: 20090423
  2. METHOTREXATE [Concomitant]
  3. ASPIRIN [Concomitant]
     Route: 048
  4. PREDNISOLONE [Concomitant]
     Dosage: EVERY OTHER DAY
     Route: 048
  5. PREDNISOLONE [Concomitant]
     Dosage: EVERY OTHER DAY
     Route: 048
  6. METFORMIN HCL [Concomitant]
     Route: 048
  7. FUROSEMIDE [Concomitant]
     Route: 048
  8. GLICLAZIDE [Concomitant]
     Route: 048
  9. ESOMEPRAZOLE [Concomitant]
     Route: 048
  10. FUROSEMIDE [Concomitant]
     Route: 048
  11. RAMIPRIL [Concomitant]
     Route: 048

REACTIONS (3)
  - ATRIAL FIBRILLATION [None]
  - CARDIAC FAILURE [None]
  - LOWER RESPIRATORY TRACT INFECTION [None]
